FAERS Safety Report 7544190-0 (Version None)
Quarter: 2011Q2

REPORT INFORMATION
  Report Type: 
  Country: None (occurrence: None)
  Receive Date: 20110613
  Receipt Date: 20061004
  Transmission Date: 20111010
  Serious: Yes (Death)
  Sender: FDA-Public Use
  Company Number: PHNU2006PL03347

PATIENT
  Sex: Male

DRUGS (1)
  1. LESCOL XL [Suspect]
     Dosage: 1 TABLET/DAY IN THE EVENING
     Route: 048
     Dates: start: 20050930, end: 20060214

REACTIONS (1)
  - CHOKING [None]
